FAERS Safety Report 16158712 (Version 3)
Quarter: 2019Q3

REPORT INFORMATION
  Report Type: Spontaneous
  Country: RU (occurrence: RU)
  Receive Date: 20190404
  Receipt Date: 20190705
  Transmission Date: 20191004
  Serious: Yes (Hospitalization, Other)
  Sender: FDA-Public Use
  Company Number: RU-AMGEN-RUSSP2019049592

PATIENT
  Age: 74 Year
  Sex: Male
  Weight: 65.2 kg

DRUGS (5)
  1. XGEVA [Suspect]
     Active Substance: DENOSUMAB
     Indication: METASTASES TO BONE
  2. IPATASERTIB. [Concomitant]
     Active Substance: IPATASERTIB
     Indication: PROSTATE CANCER
     Dosage: UNK
  3. ABIRATERONE ACETATE. [Concomitant]
     Active Substance: ABIRATERONE ACETATE
     Indication: PROSTATE CANCER
     Dosage: 1000 MILLIGRAM, QD
     Dates: start: 20180726
  4. OMEPRAZOLE. [Concomitant]
     Active Substance: OMEPRAZOLE
     Dosage: UNK
     Route: 048
     Dates: start: 20181004, end: 20181019
  5. XGEVA [Suspect]
     Active Substance: DENOSUMAB
     Indication: PROSTATE CANCER STAGE IV
     Dosage: 120 MILLIGRAM
     Route: 058
     Dates: start: 20180827, end: 20180926

REACTIONS (5)
  - Stevens-Johnson syndrome [Recovered/Resolved]
  - Pneumonia [Recovered/Resolved]
  - Stomatitis [Recovered/Resolved]
  - Rash [Recovered/Resolved]
  - Urine output decreased [Unknown]

NARRATIVE: CASE EVENT DATE: 20180829
